FAERS Safety Report 16668904 (Version 1)
Quarter: 2019Q3

REPORT INFORMATION
  Report Type: Spontaneous
  Country: US (occurrence: US)
  Receive Date: 20190805
  Receipt Date: 20190805
  Transmission Date: 20191004
  Serious: No
  Sender: FDA-Public Use
  Company Number: US-MYLANLABS-2019M1069341

PATIENT
  Sex: Male
  Weight: 84 kg

DRUGS (1)
  1. LIDOCAINE PATCH [Suspect]
     Active Substance: LIDOCAINE
     Indication: MEDICAL DEVICE IMPLANTATION
     Dosage: 1-2 PATCHES FOR UP TO 12 HOURS
     Route: 003

REACTIONS (3)
  - Off label use [Unknown]
  - Product quality issue [Unknown]
  - Product adhesion issue [Unknown]
